FAERS Safety Report 17004917 (Version 1)
Quarter: 2019Q4

REPORT INFORMATION
  Report Type: Spontaneous
  Country: US (occurrence: US)
  Receive Date: 20190926
  Receipt Date: 20190926
  Transmission Date: 20200122
  Serious: Yes (Hospitalization)
  Sender: FDA-Public Use
  Company Number: None

PATIENT
  Age: 50 Year
  Sex: Female

DRUGS (6)
  1. METHOTREXATE. [Concomitant]
     Active Substance: METHOTREXATE
  2. HYDROXYCHLOROTHIAZIDE [Concomitant]
  3. ENBREL [Suspect]
     Active Substance: ETANERCEPT
     Indication: PSORIASIS
     Route: 058
     Dates: start: 20180404, end: 20190925
  4. ATENOLOL. [Concomitant]
     Active Substance: ATENOLOL
  5. FOLIC ACID. [Concomitant]
     Active Substance: FOLIC ACID
  6. DOXYCYCLINE HYCLATE. [Concomitant]
     Active Substance: DOXYCYCLINE HYCLATE

REACTIONS (5)
  - Ill-defined disorder [None]
  - Therapy cessation [None]
  - Increased tendency to bruise [None]
  - Viral infection [None]
  - Skin cancer [None]

NARRATIVE: CASE EVENT DATE: 201909
